FAERS Safety Report 25947969 (Version 1)
Quarter: 2025Q4

REPORT INFORMATION
  Report Type: Spontaneous
  Country: EU (occurrence: EU)
  Receive Date: 20251022
  Receipt Date: 20251022
  Transmission Date: 20260118
  Serious: Yes (Hospitalization, Other)
  Sender: Atnahs Healthcare
  Company Number: EU-ATNAHS-2025-PMNV-IT001401

PATIENT

DRUGS (6)
  1. KETOROLAC [Suspect]
     Active Substance: KETOROLAC TROMETHAMINE
     Indication: Product used for unknown indication
     Dosage: 30 MILLIGRAM PER MILLILITRE
     Route: 051
     Dates: start: 2021
  2. CEFTRIAXONE [Suspect]
     Active Substance: CEFTRIAXONE
     Indication: Product used for unknown indication
     Dosage: 1 GRAM (3.5 ML)
     Route: 051
     Dates: start: 2021
  3. CEFDITOREN [Suspect]
     Active Substance: CEFDITOREN
     Indication: Antibiotic therapy
     Dosage: 400 MILLIGRAM
     Route: 065
     Dates: start: 2021
  4. LEVOFLOXACIN [Suspect]
     Active Substance: LEVOFLOXACIN
     Indication: Antibiotic therapy
     Dosage: UNK
     Route: 065
     Dates: start: 2021
  5. LEVOFLOXACIN [Suspect]
     Active Substance: LEVOFLOXACIN
     Indication: Escherichia infection
  6. AMLODIPINE\RAMIPRIL [Concomitant]
     Active Substance: AMLODIPINE\RAMIPRIL
     Indication: Product used for unknown indication
     Dosage: UNK
     Route: 065

REACTIONS (9)
  - Pyelonephritis [Unknown]
  - Hydronephrosis [Unknown]
  - Cystocele [Unknown]
  - Drug ineffective [Unknown]
  - Vulvovaginal discomfort [Unknown]
  - Hyperpyrexia [Unknown]
  - Escherichia infection [Unknown]
  - Back pain [Unknown]
  - Polymerase chain reaction positive [Unknown]

NARRATIVE: CASE EVENT DATE: 20210926
